FAERS Safety Report 16494840 (Version 1)
Quarter: 2019Q2

REPORT INFORMATION
  Report Type: Report from Study
  Country: ES (occurrence: ES)
  Receive Date: 20190628
  Receipt Date: 20190628
  Transmission Date: 20190711
  Serious: Yes (Hospitalization)
  Sender: FDA-Public Use
  Company Number: ES-TEVA-2019-ES-1070796

PATIENT
  Age: 58 Year
  Sex: Male

DRUGS (6)
  1. CETUXIMAB (7791A) [Concomitant]
     Active Substance: CETUXIMAB
     Indication: OROPHARYNGEAL CANCER
     Dosage: 400MG PER DAY
     Route: 042
     Dates: start: 20181011, end: 20181108
  2. FLUOROURACILO (272A) [Suspect]
     Active Substance: FLUOROURACIL
     Indication: OROPHARYNGEAL CANCER
     Dosage: 6.4GM PER WEEKS
     Route: 042
     Dates: start: 20181011, end: 20181110
  3. CETUXIMAB (7791A) [Suspect]
     Active Substance: CETUXIMAB
     Indication: OROPHARYNGEAL CANCER
     Dosage: 250MG PER DAY
     Route: 042
     Dates: start: 20181011
  4. CAPECITABINA (1224A) [Suspect]
     Active Substance: CAPECITABINE
     Indication: OROPHARYNGEAL CANCER
     Dosage: 2.15GM PER WEEKS
     Route: 042
     Dates: start: 20181011, end: 20181110
  5. LANSOPRAZOL (2598A) [Concomitant]
     Active Substance: LANSOPRAZOLE
     Indication: PROPHYLAXIS
     Dosage: 15MG PER DAY
     Route: 048
     Dates: start: 2018
  6. CISPLATINO (644A) [Suspect]
     Active Substance: CISPLATIN
     Indication: OROPHARYNGEAL CANCER
     Dosage: 160MG PER WEEKS
     Route: 042
     Dates: start: 20181011, end: 20181110

REACTIONS (1)
  - Enterocolitis [Recovered/Resolved]

NARRATIVE: CASE EVENT DATE: 20181110
